FAERS Safety Report 15834690 (Version 2)
Quarter: 2019Q1

REPORT INFORMATION
  Report Type: Spontaneous
  Country: US (occurrence: US)
  Receive Date: 20190116
  Receipt Date: 20190122
  Transmission Date: 20190417
  Serious: No
  Sender: FDA-Public Use
  Company Number: US-PFIZER INC-2019016018

PATIENT
  Age: 70 Year
  Sex: Male
  Weight: 52.16 kg

DRUGS (1)
  1. ADVIL [Suspect]
     Active Substance: IBUPROFEN
     Indication: FEELING ABNORMAL
     Dosage: UNK
     Dates: start: 20190109

REACTIONS (3)
  - Abdominal pain [Not Recovered/Not Resolved]
  - Fatigue [Unknown]
  - Product use issue [Unknown]

NARRATIVE: CASE EVENT DATE: 20190109
